FAERS Safety Report 19978290 (Version 1)
Quarter: 2021Q4

REPORT INFORMATION
  Report Type: Spontaneous
  Country: US (occurrence: US)
  Receive Date: 20211020
  Receipt Date: 20211020
  Transmission Date: 20220304
  Serious: Yes (unspecified)
  Sender: FDA-Public Use
  Company Number: None

PATIENT
  Age: 33 Year
  Sex: Male
  Weight: 83 kg

DRUGS (1)
  1. ONCASPAR [Suspect]
     Active Substance: PEGASPARGASE
     Route: 041
     Dates: start: 20210817, end: 20210817

REACTIONS (4)
  - Nausea [None]
  - Vomiting [None]
  - Blood glucose increased [None]
  - Decreased appetite [None]

NARRATIVE: CASE EVENT DATE: 20210914
